FAERS Safety Report 22519113 (Version 1)
Quarter: 2023Q2

REPORT INFORMATION
  Report Type: Spontaneous
  Country: US (occurrence: US)
  Receive Date: 20230605
  Receipt Date: 20230605
  Transmission Date: 20230721
  Serious: No
  Sender: FDA-Public Use
  Company Number: US-009507513-2305USA009682

PATIENT
  Age: 75 Year

DRUGS (1)
  1. BELSOMRA [Suspect]
     Active Substance: SUVOREXANT
     Indication: Insomnia
     Dosage: 15 MILLIGRAM
     Route: 048
     Dates: start: 202304

REACTIONS (2)
  - Abnormal dreams [Unknown]
  - Somnambulism [Unknown]

NARRATIVE: CASE EVENT DATE: 20230101
